FAERS Safety Report 4773321-0 (Version None)
Quarter: 2005Q3

REPORT INFORMATION
  Report Type: 
  Country: None (occurrence: None)
  Receive Date: 20050916
  Receipt Date: 20050902
  Transmission Date: 20060218
  Serious: Yes (Hospitalization)
  Sender: FDA-Public Use
  Company Number: 2005BI013109

PATIENT
  Age: 58 Year
  Sex: Female

DRUGS (5)
  1. AVONEX [Suspect]
     Indication: MULTIPLE SCLEROSIS
     Dosage: 30 UG; QW; IM
     Route: 030
     Dates: start: 20011203, end: 20040202
  2. AVONEX [Suspect]
     Indication: MULTIPLE SCLEROSIS
     Dosage: 30 UG;QW;IM
     Route: 030
     Dates: start: 20050121
  3. BACOFEN [Concomitant]
  4. LISINOPRIL [Concomitant]
  5. THYROID TAB [Concomitant]

REACTIONS (4)
  - CONDITION AGGRAVATED [None]
  - DEHYDRATION [None]
  - INFLUENZA [None]
  - MULTIPLE SCLEROSIS [None]
